FAERS Safety Report 17269415 (Version 1)
Quarter: 2020Q1

REPORT INFORMATION
  Report Type: Spontaneous
  Country: US (occurrence: US)
  Receive Date: 20200114
  Receipt Date: 20200114
  Transmission Date: 20200409
  Serious: Yes (Other)
  Sender: FDA-Public Use
  Company Number: NVSC2020US006327

PATIENT
  Age: 4 Year
  Sex: Male
  Weight: 14.01 kg

DRUGS (7)
  1. DELAMANID [Suspect]
     Active Substance: DELAMANID
     Indication: TUBERCULOSIS
     Dosage: 100 MG, QD
     Route: 065
     Dates: start: 20191030, end: 2019
  2. BEDAQUILINE [Suspect]
     Active Substance: BEDAQUILINE
     Indication: TUBERCULOSIS
     Dosage: 100 MG (14 DAYS)
     Route: 065
  3. BEDAQUILINE [Suspect]
     Active Substance: BEDAQUILINE
     Dosage: 100 MG (14 DAYS)
     Route: 065
  4. DELAMANID [Suspect]
     Active Substance: DELAMANID
     Dosage: 25 MG, BID
     Route: 065
     Dates: start: 20191202, end: 20191206
  5. CLOFAZIMINE [Suspect]
     Active Substance: CLOFAZIMINE
     Indication: TUBERCULOSIS
     Dosage: 50 MG, QD
     Route: 065
     Dates: start: 20191030
  6. CYCLOSERINE. [Suspect]
     Active Substance: CYCLOSERINE
     Indication: TUBERCULOSIS
     Dosage: 250 MG, QD
     Route: 065
     Dates: start: 20191030
  7. LINEZOLIDE [Suspect]
     Active Substance: LINEZOLID
     Indication: TUBERCULOSIS
     Route: 065

REACTIONS (2)
  - Product use issue [Unknown]
  - Insomnia [Recovered/Resolved]

NARRATIVE: CASE EVENT DATE: 20191030
